FAERS Safety Report 5682401-7 (Version None)
Quarter: 2008Q1

REPORT INFORMATION
  Report Type: 
  Country: None (occurrence: None)
  Receive Date: 20080327
  Receipt Date: 20080317
  Transmission Date: 20080703
  Serious: Yes (Death, Hospitalization, Other)
  Sender: FDA-Public Use
  Company Number: US-ROCHE-544245

PATIENT
  Age: 79 Year
  Sex: Female
  Weight: 61.2 kg

DRUGS (12)
  1. BONIVA [Suspect]
     Indication: OSTEOPOROSIS
     Route: 042
     Dates: start: 20070101, end: 20080127
  2. ZITHROMAX [Suspect]
     Indication: BRONCHITIS
     Route: 048
     Dates: start: 20080125, end: 20080125
  3. ZITHROMAX [Suspect]
     Route: 048
     Dates: start: 20080126, end: 20080127
  4. COUMADIN [Concomitant]
  5. ALTACE [Concomitant]
  6. PREVACID [Concomitant]
  7. DETROL LA [Concomitant]
  8. PAXIL [Concomitant]
  9. COREG [Concomitant]
  10. CENTRUM SILVER [Concomitant]
  11. CALTRATE + D [Concomitant]
  12. CRESTOR [Concomitant]
     Route: 048

REACTIONS (8)
  - ALANINE AMINOTRANSFERASE INCREASED [None]
  - ANOREXIA [None]
  - ASPARTATE AMINOTRANSFERASE INCREASED [None]
  - BRONCHITIS [None]
  - DIARRHOEA [None]
  - NAUSEA [None]
  - RENAL FAILURE ACUTE [None]
  - VOMITING [None]
